FAERS Safety Report 8209093-7 (Version None)
Quarter: 2012Q1

REPORT INFORMATION
  Report Type: 
  Country: None (occurrence: None)
  Receive Date: 20120314
  Receipt Date: 20120309
  Transmission Date: 20120608
  Serious: Yes (Death, Hospitalization)
  Sender: FDA-Public Use
  Company Number: ZA-BRISTOL-MYERS SQUIBB COMPANY-16344608

PATIENT
  Age: 62 Year
  Sex: Male

DRUGS (7)
  1. BLINDED: PLACEBO [Suspect]
     Indication: TYPE 2 DIABETES MELLITUS
     Dates: start: 20101207, end: 20111218
  2. METFORMIN HCL [Suspect]
     Indication: TYPE 2 DIABETES MELLITUS
     Dosage: UNK-23DEC11,1000MG 24DEC-25DEC11,500MG
     Dates: end: 20111225
  3. ACTRAPHANE [Suspect]
     Indication: TYPE 2 DIABETES MELLITUS
     Dosage: UNK-07DEC10,92IU 08DEC10-14JUN11,82IU 15JUN-17DEC11,92IU/U 18-25DEC11,80IU/U 28DEC11-07JAN12
     Dates: end: 20120107
  4. ASPIRIN [Concomitant]
     Dosage: 1DF:{100MG
  5. BLINDED: SAXAGLIPTIN [Suspect]
     Indication: TYPE 2 DIABETES MELLITUS
     Dates: start: 20101207, end: 20111218
  6. MAXOLON [Concomitant]
     Dates: start: 20111218, end: 20111218
  7. ATIVAN [Concomitant]
     Dates: start: 20111218, end: 20111218

REACTIONS (2)
  - PNEUMOCYSTIS JIROVECI PNEUMONIA [None]
  - HIV INFECTION [None]
